FAERS Safety Report 18886935 (Version 5)
Quarter: 2021Q1

REPORT INFORMATION
  Report Type: Spontaneous
  Country: CZ (occurrence: CZ)
  Receive Date: 20210212
  Receipt Date: 20210316
  Transmission Date: 20210420
  Serious: Yes (Other)
  Sender: FDA-Public Use
  Company Number: NVSC2021CZ027403

PATIENT
  Age: 67 Year
  Sex: Female

DRUGS (15)
  1. FENOFIBRATE. [Suspect]
     Active Substance: FENOFIBRATE
     Indication: DYSLIPIDAEMIA
     Dosage: 215 MG, QD
     Route: 048
     Dates: start: 2012
  2. EZETIMIBE. [Suspect]
     Active Substance: EZETIMIBE
     Indication: DYSLIPIDAEMIA
     Dosage: 10 MG
     Route: 065
  3. PERINDOPRIL [Concomitant]
     Active Substance: PERINDOPRIL
     Indication: HYPERTENSION
  4. PERINDOPRIL [Concomitant]
     Active Substance: PERINDOPRIL
     Indication: DYSLIPIDAEMIA
  5. PERINDOPRIL [Concomitant]
     Active Substance: PERINDOPRIL
     Indication: ACUTE MYOCARDIAL INFARCTION
     Dosage: 5 MG, QD
     Route: 048
     Dates: start: 2012
  6. LEVOTHYROXINE. [Concomitant]
     Active Substance: LEVOTHYROXINE
     Indication: THYROID HORMONE REPLACEMENT THERAPY
     Dosage: 100 UG Q24H
     Route: 065
     Dates: start: 2012
  7. COENZYME Q10 [Concomitant]
     Active Substance: DIETARY SUPPLEMENT\UBIDECARENONE
     Indication: PROPHYLAXIS
  8. ACETYLSALICYLIC ACID [Concomitant]
     Active Substance: ASPIRIN
     Indication: HYPERTENSION
     Dosage: 100 MG
     Route: 065
     Dates: start: 2012
  9. BISOPROLOL [Concomitant]
     Active Substance: BISOPROLOL
     Indication: DYSLIPIDAEMIA
  10. COENZYME Q10 [Concomitant]
     Active Substance: DIETARY SUPPLEMENT\UBIDECARENONE
     Indication: MYALGIA
     Dosage: 30 MILLIGRAM, BID
     Route: 065
  11. ATORVASTATIN CALCIUM. [Suspect]
     Active Substance: ATORVASTATIN CALCIUM
     Indication: DYSLIPIDAEMIA
     Dosage: 80 MG, QD
     Route: 048
     Dates: start: 2010
  12. ROSUVASTATIN. [Suspect]
     Active Substance: ROSUVASTATIN
     Indication: DYSLIPIDAEMIA
     Dosage: 20 MG, QD
     Route: 048
     Dates: start: 2010
  13. WARFARIN [Concomitant]
     Active Substance: WARFARIN
     Indication: ANTICOAGULANT THERAPY
     Dosage: UNK
     Route: 065
  14. SIMVASTATIN. [Suspect]
     Active Substance: SIMVASTATIN
     Indication: DYSLIPIDAEMIA
     Dosage: 40 MG, QD
     Route: 048
     Dates: start: 2010
  15. BISOPROLOL [Concomitant]
     Active Substance: BISOPROLOL
     Indication: HYPERTENSION
     Dosage: 5 MG, QD
     Route: 048
     Dates: start: 2012

REACTIONS (3)
  - Drug intolerance [Recovered/Resolved]
  - Myalgia [Recovered/Resolved]
  - Drug ineffective [Unknown]
